FAERS Safety Report 14672880 (Version 5)
Quarter: 2018Q2

REPORT INFORMATION
  Report Type: Spontaneous
  Country: GB (occurrence: GB)
  Receive Date: 20180323
  Receipt Date: 20180620
  Transmission Date: 20180711
  Serious: Yes (Other)
  Sender: FDA-Public Use
  Company Number: GB-TORRENT-00016302

PATIENT
  Age: 79 Year
  Sex: Female

DRUGS (5)
  1. SERTRALINE [Concomitant]
     Active Substance: SERTRALINE HYDROCHLORIDE
     Indication: VASCULAR DEMENTIA
     Dosage: AT 9.00
     Route: 065
  2. OLANZAPINE. [Suspect]
     Active Substance: OLANZAPINE
     Indication: PRODUCT USED FOR UNKNOWN INDICATION
     Dosage: 5 MG, BID
     Route: 065
  3. MEMANTINE. [Suspect]
     Active Substance: MEMANTINE
     Indication: MIXED DEMENTIA
     Route: 065
  4. LORAZEPAM. [Concomitant]
     Active Substance: LORAZEPAM
     Indication: DEMENTIA ALZHEIMER^S TYPE
     Dosage: AT 14:00
     Route: 065
  5. QUETIAPINE. [Suspect]
     Active Substance: QUETIAPINE
     Indication: MENTAL DISORDER
     Dosage: AT NIGHT AND AT 09:00
     Route: 048

REACTIONS (4)
  - Product use in unapproved indication [Unknown]
  - Bradycardia [Recovered/Resolved]
  - Off label use [Unknown]
  - Drug effect incomplete [Unknown]
